FAERS Safety Report 6782801-8 (Version None)
Quarter: 2010Q2

REPORT INFORMATION
  Report Type: 
  Country: None (occurrence: None)
  Receive Date: 20100616
  Receipt Date: 20100531
  Transmission Date: 20101027
  Serious: Yes (Life-Threatening, Hospitalization, Other)
  Sender: FDA-Public Use
  Company Number: 2010-00575

PATIENT
  Age: 52 Year
  Sex: Male

DRUGS (5)
  1. SIMVASTATIN [Suspect]
     Indication: DRUG USE FOR UNKNOWN INDICATION
     Dosage: 40 MG (1 IN 1 D), ORAL
     Route: 048
  2. FUSIDIC ACID [Suspect]
     Indication: ARTHRITIS BACTERIAL
     Dosage: 500 MG (3 IN 1 D)
  3. HUMALOG [Suspect]
     Indication: DIABETES MELLITUS
     Dosage: 18 DOSAGE FORMS (1 IN 1 D)
  4. AMLODIPINE [Concomitant]
  5. FLUCLOXACILLIN [Concomitant]

REACTIONS (8)
  - ALANINE AMINOTRANSFERASE INCREASED [None]
  - ASPARTATE AMINOTRANSFERASE INCREASED [None]
  - DRUG INTERACTION [None]
  - HAEMODIALYSIS [None]
  - QUADRIPARESIS [None]
  - RENAL FAILURE [None]
  - RESPIRATORY FAILURE [None]
  - RHABDOMYOLYSIS [None]
